FAERS Safety Report 6763742-9 (Version None)
Quarter: 2010Q2

REPORT INFORMATION
  Report Type: 
  Country: None (occurrence: None)
  Receive Date: 20100608
  Receipt Date: 20100527
  Transmission Date: 20101027
  Serious: Yes (Life-Threatening)
  Sender: FDA-Public Use
  Company Number: 2010-0356

PATIENT
  Age: 79 Year
  Sex: Male

DRUGS (7)
  1. APOKYN [Suspect]
     Indication: PARKINSON'S DISEASE
     Dosage: 0.2 MG; SUBCUTANEOUS; 0.4 MG; SUBCUTANEOUS
     Route: 058
     Dates: start: 20100130, end: 20100130
  2. APOKYN [Suspect]
     Indication: PARKINSON'S DISEASE
     Dosage: 0.2 MG; SUBCUTANEOUS; 0.4 MG; SUBCUTANEOUS
     Route: 058
     Dates: start: 20100130, end: 20100130
  3. NORVASC [Concomitant]
  4. SINEMET [Concomitant]
  5. VESICARE [Concomitant]
  6. HYDROCHLOROTHIAZIDE [Concomitant]
  7. GALANTAMINE (GALANTAMINE) [Concomitant]

REACTIONS (6)
  - BLOOD PRESSURE DECREASED [None]
  - DEPRESSED LEVEL OF CONSCIOUSNESS [None]
  - DRUG INEFFECTIVE [None]
  - FALL [None]
  - HALLUCINATION [None]
  - SOMNOLENCE [None]
